FAERS Safety Report 25761686 (Version 1)
Quarter: 2025Q3

REPORT INFORMATION
  Report Type: Spontaneous
  Country: BR (occurrence: BR)
  Receive Date: 20250904
  Receipt Date: 20250904
  Transmission Date: 20251021
  Serious: Yes (Other)
  Sender: BIOMARIN
  Company Number: BR-SANOFI-02630550

PATIENT
  Age: 10 Year
  Sex: Male
  Weight: 14.6 kg

DRUGS (3)
  1. ALDURAZYME [Suspect]
     Active Substance: LARONIDASE
     Indication: Mucopolysaccharidosis I
     Dosage: 3 DF, QOW
     Dates: start: 20190521
  2. ALDURAZYME [Suspect]
     Active Substance: LARONIDASE
     Dosage: 3 DF, QW
  3. CARBAMAZEPINE [Concomitant]
     Active Substance: CARBAMAZEPINE
     Indication: Product used for unknown indication

REACTIONS (6)
  - Hydrocephalus [Unknown]
  - Muscle atrophy [Unknown]
  - Gait disturbance [Unknown]
  - Secretion discharge [Unknown]
  - Dysphonia [Recovering/Resolving]
  - Inappropriate schedule of product administration [Unknown]

NARRATIVE: CASE EVENT DATE: 20190101
